FAERS Safety Report 16767954 (Version 8)
Quarter: 2020Q2

REPORT INFORMATION
  Report Type: Spontaneous
  Country: CN (occurrence: CN)
  Receive Date: 20190903
  Receipt Date: 20200430
  Transmission Date: 20200713
  Serious: Yes (Life-Threatening)
  Sender: FDA-Public Use
  Company Number: CN-CELGENEUS-CHN-20190900164

PATIENT
  Age: 83 Year
  Sex: Male

DRUGS (70)
  1. ESTAZOLAM. [Concomitant]
     Active Substance: ESTAZOLAM
     Indication: PROPHYLAXIS
     Dosage: 1 MILLIGRAM
     Route: 048
     Dates: start: 20180827, end: 20180918
  2. PIPERACILLIN AND TAZOBACTAM [Concomitant]
     Active Substance: PIPERACILLIN SODIUM\TAZOBACTAM SODIUM
     Dosage: 13.5 GRAM
     Route: 041
     Dates: start: 20181225, end: 20181225
  3. PIPERACILLIN AND TAZOBACTAM [Concomitant]
     Active Substance: PIPERACILLIN SODIUM\TAZOBACTAM SODIUM
     Dosage: 13.5 GRAM
     Route: 041
     Dates: start: 20190116, end: 20190117
  4. RECOMBINANT HUMAN GRANULOCYTE COLONY STIMULATING FACTOR [Concomitant]
     Active Substance: GRANULOCYTE COLONY-STIMULATING FACTOR NOS
     Dosage: 300 MICROGRAM
     Route: 058
     Dates: start: 20181119, end: 20181129
  5. HYDROGEN SILICONE [Concomitant]
     Indication: PROPHYLAXIS
     Route: 061
     Dates: start: 20180911, end: 201901
  6. UREA. [Concomitant]
     Active Substance: UREA
     Indication: PROPHYLAXIS
     Route: 061
     Dates: start: 20190108, end: 20190201
  7. PANTOPRAZOLE SODIUM. [Concomitant]
     Active Substance: PANTOPRAZOLE SODIUM
     Indication: GASTROOESOPHAGEAL REFLUX PROPHYLAXIS
     Dosage: 40 MILLIGRAM
     Route: 048
     Dates: start: 20180925, end: 20180925
  8. PANTOPRAZOLE SODIUM. [Concomitant]
     Active Substance: PANTOPRAZOLE SODIUM
     Dosage: 40 MILLIGRAM
     Route: 041
     Dates: start: 201809, end: 20181001
  9. BISOPROLOL FUMARATE. [Concomitant]
     Active Substance: BISOPROLOL FUMARATE
     Indication: ATRIAL FIBRILLATION
     Dosage: 5 MILLIGRAM
     Route: 048
     Dates: start: 20180813
  10. BISOPROLOL FUMARATE. [Concomitant]
     Active Substance: BISOPROLOL FUMARATE
     Dosage: 5 MILLIGRAM
     Route: 048
     Dates: start: 20181016
  11. SODIUM BICARBONATE. [Concomitant]
     Active Substance: SODIUM BICARBONATE
     Indication: PROPHYLAXIS
     Dosage: 120 MILLILITER
     Route: 041
     Dates: start: 20180826, end: 20180831
  12. SODIUM BICARBONATE. [Concomitant]
     Active Substance: SODIUM BICARBONATE
     Indication: INFECTION PROPHYLAXIS
     Route: 048
  13. MUPIROCIN. [Concomitant]
     Active Substance: MUPIROCIN
     Indication: INJECTION SITE SWELLING
     Route: 003
     Dates: start: 20180831, end: 20190117
  14. ITOPRIDE [Concomitant]
     Active Substance: ITOPRIDE
     Indication: PROPHYLAXIS
     Dosage: 450 MILLIGRAM
     Route: 065
     Dates: start: 20190115, end: 20190201
  15. CASPOFUNGIN [Concomitant]
     Active Substance: CASPOFUNGIN
     Dosage: 50 MILLIGRAM
     Route: 041
     Dates: start: 20181227, end: 20190110
  16. AZACITIDINE. [Suspect]
     Active Substance: AZACITIDINE
     Indication: ACUTE MYELOID LEUKAEMIA
     Dosage: 18.75 MILLIGRAM/SQ. METER
     Route: 058
     Dates: start: 20180827, end: 20181212
  17. VENETOCLAX. [Concomitant]
     Active Substance: VENETOCLAX
     Dosage: 100 MILLIGRAM
     Route: 048
     Dates: end: 20180827
  18. IPRATROPIUM BROMIDE. [Concomitant]
     Active Substance: IPRATROPIUM BROMIDE
     Indication: DYSPNOEA
  19. POTASSIUM CITRATE. [Concomitant]
     Active Substance: POTASSIUM CITRATE
     Indication: HYPOKALAEMIA
     Dosage: 30 MILLILITER
     Route: 048
     Dates: start: 20180828, end: 20180828
  20. METHYLYPREDNISOLONE SODIUM SUCCINATE [Concomitant]
     Dosage: 40 MILLIGRAM
     Route: 041
     Dates: start: 20190116, end: 20190116
  21. CASPOFUNGIN [Concomitant]
     Active Substance: CASPOFUNGIN
     Indication: PNEUMONIA
     Dosage: 70 MILLIGRAM
     Route: 041
     Dates: start: 20181226, end: 20181226
  22. HIRUDOID [Concomitant]
     Active Substance: GLYCOSAMINOGLYCANS
     Indication: PROPHYLAXIS
  23. HIRUDOID [Concomitant]
     Active Substance: GLYCOSAMINOGLYCANS
     Indication: INJECTION SITE PAIN
  24. PULMICORT TURBUHALER [Concomitant]
     Active Substance: BUDESONIDE
     Indication: PNEUMONIA
     Dosage: 1 MILLIGRAM
     Route: 055
     Dates: start: 20190114, end: 20190114
  25. PULMICORT TURBUHALER [Concomitant]
     Active Substance: BUDESONIDE
     Dosage: 2 MILLIGRAM
     Route: 055
     Dates: start: 20190115, end: 20190115
  26. PULMICORT TURBUHALER [Concomitant]
     Active Substance: BUDESONIDE
     Dosage: 4 MILLIGRAM
     Route: 055
     Dates: start: 201901, end: 20190201
  27. IPRATROPIUM BROMIDE. [Concomitant]
     Active Substance: IPRATROPIUM BROMIDE
     Indication: PNEUMONIA
     Dosage: 500 MICROGRAM
     Route: 055
     Dates: start: 20190115, end: 20190115
  28. IPRATROPIUM BROMIDE. [Concomitant]
     Active Substance: IPRATROPIUM BROMIDE
     Indication: PNEUMONIA
     Dosage: 1000 MICROGRAM
     Route: 055
     Dates: start: 20190115, end: 20190201
  29. RECOMBINANT HUMAN GRANULOCYTE COLONY STIMULATING FACTOR [Concomitant]
     Active Substance: GRANULOCYTE COLONY-STIMULATING FACTOR NOS
     Dosage: 300 MICROGRAM
     Route: 058
     Dates: start: 201810, end: 20181029
  30. RECOMBINANT HUMAN GRANULOCYTE COLONY STIMULATING FACTOR [Concomitant]
     Active Substance: GRANULOCYTE COLONY-STIMULATING FACTOR NOS
     Dosage: 150 MICROGRAM
     Route: 058
     Dates: start: 20181117, end: 20181117
  31. RECOMBINANT HUMAN GRANULOCYTE COLONY STIMULATING FACTOR [Concomitant]
     Active Substance: GRANULOCYTE COLONY-STIMULATING FACTOR NOS
     Dosage: 600 MICROGRAM
     Route: 058
     Dates: start: 20181218, end: 20181225
  32. POTASSIUM CITRATE. [Concomitant]
     Active Substance: POTASSIUM CITRATE
     Dosage: 60 MILLILITER
     Route: 048
     Dates: start: 20190117, end: 20190128
  33. VENETOCLAX. [Concomitant]
     Active Substance: VENETOCLAX
     Dosage: 400 MILLIGRAM
     Route: 048
     Dates: start: 20180829, end: 20181226
  34. ESTAZOLAM. [Concomitant]
     Active Substance: ESTAZOLAM
     Dosage: 1 MILLIGRAM
     Route: 048
     Dates: start: 20181117
  35. PIPERACILLIN AND TAZOBACTAM [Concomitant]
     Active Substance: PIPERACILLIN SODIUM\TAZOBACTAM SODIUM
     Indication: PNEUMONIA
     Dosage: 13.5 GRAM
     Route: 041
     Dates: start: 20181020, end: 20181022
  36. RECOMBINANT HUMAN GRANULOCYTE COLONY STIMULATING FACTOR [Concomitant]
     Active Substance: GRANULOCYTE COLONY-STIMULATING FACTOR NOS
     Dosage: 400 MICROGRAM
     Route: 058
     Dates: start: 20181226, end: 20190113
  37. POTASSIUM CITRATE. [Concomitant]
     Active Substance: POTASSIUM CITRATE
     Dosage: 20 MILLILITER
     Route: 048
     Dates: start: 20180829, end: 20180829
  38. PANTOPRAZOLE SODIUM. [Concomitant]
     Active Substance: PANTOPRAZOLE SODIUM
     Dosage: 40 MILLIGRAM
     Route: 048
     Dates: start: 20190115, end: 20190115
  39. METHYLYPREDNISOLONE SODIUM SUCCINATE [Concomitant]
     Indication: PNEUMONIA
     Dosage: 40 MILLIGRAM
     Route: 041
     Dates: start: 20190115, end: 20190115
  40. COMPOUND BAICALIN  TEA SUPPOSITORY [Concomitant]
     Indication: INFECTION PROPHYLAXIS
     Route: 054
     Dates: start: 20180826
  41. CASPOFUNGIN [Concomitant]
     Active Substance: CASPOFUNGIN
     Dosage: 70 MILLIGRAM
     Route: 041
     Dates: start: 20190114, end: 20190114
  42. RIVAROXABAN [Concomitant]
     Active Substance: RIVAROXABAN
     Indication: ATRIAL FIBRILLATION
     Route: 065
     Dates: start: 20180918
  43. VENETOCLAX. [Concomitant]
     Active Substance: VENETOCLAX
     Indication: ACUTE MYELOID LEUKAEMIA
     Dosage: 200 MILLIGRAM
     Route: 048
     Dates: start: 20180828, end: 20180828
  44. SCUTELLARIA BAICALENSIS [Concomitant]
     Indication: INFECTION PROPHYLAXIS
     Dosage: 1 GRAIN (1 OTHER, AS REQUIRED)
     Route: 054
     Dates: start: 20180826
  45. ESTAZOLAM. [Concomitant]
     Active Substance: ESTAZOLAM
     Dosage: 1 MILLIGRAM
     Route: 048
     Dates: start: 20181016, end: 20181109
  46. SODIUM HYALURONATE [Concomitant]
     Active Substance: HYALURONATE SODIUM
     Indication: OPTIC NEURITIS
     Dosage: 10 MILLIGRAM
     Route: 047
     Dates: start: 20181213
  47. RECOMBINANT HUMAN GRANULOCYTE COLONY STIMULATING FACTOR [Concomitant]
     Active Substance: GRANULOCYTE COLONY-STIMULATING FACTOR NOS
     Dosage: 300 MICROGRAM
     Route: 058
     Dates: start: 20181016, end: 201810
  48. POTASSIUM CITRATE. [Concomitant]
     Active Substance: POTASSIUM CITRATE
     Dosage: 30 MILLILITER
     Route: 048
     Dates: start: 20180830, end: 20180903
  49. POTASSIUM CITRATE. [Concomitant]
     Active Substance: POTASSIUM CITRATE
     Dosage: 60 MILLILITER
     Route: 048
     Dates: start: 20190201, end: 20190203
  50. HYDROGEN SILICONE [Concomitant]
     Indication: DRY SKIN
     Route: 062
     Dates: start: 20190108, end: 20190201
  51. PANTOPRAZOLE SODIUM. [Concomitant]
     Active Substance: PANTOPRAZOLE SODIUM
     Indication: PROPHYLAXIS
     Dosage: 40 MILLIGRAM
     Route: 041
     Dates: start: 20180827, end: 20180903
  52. PANTOPRAZOLE SODIUM. [Concomitant]
     Active Substance: PANTOPRAZOLE SODIUM
     Dosage: 40 MILLIGRAM
     Route: 041
     Dates: start: 20181206, end: 20181212
  53. RIVAROXABAN [Concomitant]
     Active Substance: RIVAROXABAN
     Indication: THROMBOSIS PROPHYLAXIS
     Route: 065
     Dates: start: 20180925, end: 20181006
  54. PIPERACILLIN AND TAZOBACTAM [Concomitant]
     Active Substance: PIPERACILLIN SODIUM\TAZOBACTAM SODIUM
     Dosage: 13.5 GRAM
     Route: 041
     Dates: start: 20181122, end: 20181210
  55. PANTOPRAZOLE SODIUM. [Concomitant]
     Active Substance: PANTOPRAZOLE SODIUM
     Dosage: 40 MILLIGRAM
     Route: 041
     Dates: start: 20181102, end: 20181109
  56. FEBUXOSTAT. [Concomitant]
     Active Substance: FEBUXOSTAT
     Indication: PROPHYLAXIS
     Dosage: 40 MILLIGRAM
     Route: 048
     Dates: start: 20180826, end: 20180904
  57. ITOPRIDE [Concomitant]
     Active Substance: ITOPRIDE
     Indication: ABDOMINAL DISTENSION
     Dosage: 450 MILLIGRAM
     Route: 065
     Dates: start: 20190104, end: 20190114
  58. CASPOFUNGIN [Concomitant]
     Active Substance: CASPOFUNGIN
     Dosage: 50 MILLIGRAM
     Route: 041
     Dates: start: 20190115, end: 20190201
  59. ESTAZOLAM. [Concomitant]
     Active Substance: ESTAZOLAM
     Indication: INSOMNIA
     Dosage: 1 MILLIGRAM
     Route: 048
     Dates: start: 20180925, end: 20181001
  60. PIPERACILLIN AND TAZOBACTAM [Concomitant]
     Active Substance: PIPERACILLIN SODIUM\TAZOBACTAM SODIUM
     Dosage: 13.5 GRAM
     Route: 041
     Dates: start: 20190114, end: 20190116
  61. RECOMBINANT HUMAN GRANULOCYTE COLONY STIMULATING FACTOR [Concomitant]
     Active Substance: GRANULOCYTE COLONY-STIMULATING FACTOR NOS
     Indication: NEUTROPENIA
     Dosage: 300 MICROGRAM
     Route: 058
     Dates: start: 20180910, end: 20180915
  62. MUPIROCIN. [Concomitant]
     Active Substance: MUPIROCIN
     Indication: PROPHYLAXIS
  63. HIRUDOID [Concomitant]
     Active Substance: GLYCOSAMINOGLYCANS
     Indication: INJECTION SITE SWELLING
     Route: 058
     Dates: start: 20180831
  64. IODINE GLYCEROL [Concomitant]
     Indication: ANTIFUNGAL PROPHYLAXIS
     Route: 002
     Dates: start: 20180826
  65. POVIDONE-IODINE. [Concomitant]
     Active Substance: POVIDONE-IODINE
     Indication: INFECTION PROPHYLAXIS
     Route: 061
     Dates: start: 20180826
  66. GLYCEROL ETHER [Concomitant]
     Indication: PNEUMONIA
     Dosage: 30 MILLILITER
     Route: 048
     Dates: start: 20190115, end: 20190201
  67. RECOMBINANT HUMAN GRANULOCYTE COLONY STIMULATING FACTOR [Concomitant]
     Active Substance: GRANULOCYTE COLONY-STIMULATING FACTOR NOS
     Dosage: 400 MICROGRAM
     Route: 058
     Dates: start: 20190116, end: 20190118
  68. NORMAL SALINE [Concomitant]
     Active Substance: SODIUM CHLORIDE
     Indication: PROPHYLAXIS
     Dosage: 600 MILLILITER (0.9%)
     Route: 041
     Dates: start: 20180826, end: 20180831
  69. MUPIROCIN. [Concomitant]
     Active Substance: MUPIROCIN
     Indication: INJECTION SITE PAIN
  70. RIVAROXABAN [Concomitant]
     Active Substance: RIVAROXABAN
     Route: 065
     Dates: start: 201810, end: 20181010

REACTIONS (1)
  - Cardiac failure [Not Recovered/Not Resolved]

NARRATIVE: CASE EVENT DATE: 20190116
